FAERS Safety Report 6258372-1 (Version None)
Quarter: 2009Q3

REPORT INFORMATION
  Report Type: 
  Country: None (occurrence: None)
  Receive Date: 20090702
  Receipt Date: 20090702
  Transmission Date: 20100115
  Serious: Yes (Other)
  Sender: FDA-Public Use
  Company Number: None

PATIENT
  Age: 59 Year
  Sex: Female
  Weight: 58.9676 kg

DRUGS (1)
  1. BONIVA [Suspect]
     Indication: OSTEOPOROSIS
     Dosage: 3MG ONCE EVERY 3 MONTH IV
     Route: 042
     Dates: start: 20090402, end: 20090402

REACTIONS (10)
  - BLISTER [None]
  - BLOOD IMMUNOGLOBULIN G INCREASED [None]
  - BURNING SENSATION [None]
  - ERYTHEMA [None]
  - EYE SWELLING [None]
  - LIP SWELLING [None]
  - PRURITUS [None]
  - SCAR [None]
  - SWELLING FACE [None]
  - URTICARIA [None]
